FAERS Safety Report 9708477 (Version 1)
Quarter: 2013Q4

REPORT INFORMATION
  Report Type: Spontaneous
  Country: US (occurrence: None)
  Receive Date: 20131121
  Receipt Date: 20131121
  Transmission Date: 20140711
  Serious: Yes (Life-Threatening)
  Sender: FDA-Public Use
  Company Number: 1713747-2013-99977

PATIENT
  Age: 41 Year
  Sex: Female
  Weight: 65.1 kg

DRUGS (2)
  1. DELFLEX [Suspect]
     Indication: PERITONEAL DIALYSIS
     Route: 033
  2. LIBERTY CYCLER TUBING [Concomitant]

REACTIONS (2)
  - Device connection issue [None]
  - Peritonitis [None]
